FAERS Safety Report 15412319 (Version 1)
Quarter: 2018Q3

REPORT INFORMATION
  Report Type: Spontaneous
  Country: US (occurrence: US)
  Receive Date: 20180921
  Receipt Date: 20180921
  Transmission Date: 20181010
  Serious: No
  Sender: FDA-Public Use
  Company Number: US-BAYER-2018-173051

PATIENT
  Age: 73 Year
  Sex: Female
  Weight: 62.99 kg

DRUGS (2)
  1. BENADRYL [Concomitant]
     Active Substance: DIPHENHYDRAMINE HYDROCHLORIDE
     Indication: HYPERSENSITIVITY
  2. CLARITIN [Suspect]
     Active Substance: LORATADINE
     Dosage: 1 DF, BID
     Route: 048

REACTIONS (1)
  - Feeling abnormal [Not Recovered/Not Resolved]
